FAERS Safety Report 18725103 (Version 2)
Quarter: 2021Q2

REPORT INFORMATION
  Report Type: Spontaneous
  Country: SK (occurrence: SK)
  Receive Date: 20210111
  Receipt Date: 20210407
  Transmission Date: 20210717
  Serious: No
  Sender: FDA-Public Use
  Company Number: SK-MYLANLABS-2020M1105885

PATIENT
  Sex: Male

DRUGS (1)
  1. SEMGLEE [Suspect]
     Active Substance: INSULIN GLARGINE
     Indication: PRODUCT USED FOR UNKNOWN INDICATION
     Dosage: UNK

REACTIONS (2)
  - Product quality issue [None]
  - Device failure [None]
